FAERS Safety Report 9940547 (Version 1)
Quarter: 2014Q1

REPORT INFORMATION
  Report Type: Spontaneous
  Country: US (occurrence: US)
  Receive Date: 20140303
  Receipt Date: 20140303
  Transmission Date: 20141002
  Serious: Yes (Other)
  Sender: FDA-Public Use
  Company Number: US-PFIZER INC-2014060122

PATIENT
  Sex: Male

DRUGS (1)
  1. VIAGRA [Suspect]
     Indication: ERECTILE DYSFUNCTION
     Dosage: 300 MG (THREE TABLETS OF 100MG), UNK
     Dates: start: 20140227

REACTIONS (2)
  - Incorrect dose administered [Unknown]
  - Erection increased [Recovered/Resolved]
